FAERS Safety Report 23337349 (Version 2)
Quarter: 2024Q1

REPORT INFORMATION
  Report Type: Spontaneous
  Country: CZ (occurrence: CZ)
  Receive Date: 20231226
  Receipt Date: 20240101
  Transmission Date: 20240409
  Serious: Yes (Other)
  Sender: FDA-Public Use
  Company Number: CZ-ROCHE-3478627

PATIENT
  Age: 52 Year
  Sex: Female

DRUGS (18)
  1. GAZYVA [Suspect]
     Active Substance: OBINUTUZUMAB
     Indication: Chronic lymphocytic leukaemia
     Dosage: CYCLE 2 - 12/APR/2023, CYCLE 3 - 17/MAY/2023, CYCLE 4 - 14/JUN/2023, CYCLE 5 - 12/JUL/2023, CYCLE 6
     Route: 065
     Dates: start: 20230323
  2. GAZYVA [Suspect]
     Active Substance: OBINUTUZUMAB
     Dosage: 5.CYCLE
     Route: 065
     Dates: start: 20230614
  3. GAZYVA [Suspect]
     Active Substance: OBINUTUZUMAB
     Dosage: 8.CYCLE
     Route: 065
     Dates: start: 20230906
  4. GAZYVA [Suspect]
     Active Substance: OBINUTUZUMAB
     Route: 065
     Dates: start: 20230412
  5. GAZYVA [Suspect]
     Active Substance: OBINUTUZUMAB
     Route: 065
     Dates: start: 20230215
  6. GAZYVA [Suspect]
     Active Substance: OBINUTUZUMAB
     Dosage: 7.CYCLE
     Route: 065
     Dates: start: 20230809
  7. GAZYVA [Suspect]
     Active Substance: OBINUTUZUMAB
     Dosage: 4.CYCLE
     Route: 065
     Dates: start: 20230517
  8. GAZYVA [Suspect]
     Active Substance: OBINUTUZUMAB
     Dosage: 6.CYCLE
     Route: 065
     Dates: start: 20230712
  9. VENETOCLAX [Suspect]
     Active Substance: VENETOCLAX
     Indication: Chronic lymphocytic leukaemia
     Dosage: CYCLE 2 - 15/FEB/2023, CYCLE 3 - 19/APR/2023, CYCLE 4 - 17/MAY/2023, CYCLE 5 - 14/JUN/2023, CYCLE 6
     Route: 048
     Dates: start: 20230323
  10. VENETOCLAX [Suspect]
     Active Substance: VENETOCLAX
     Dosage: 9.CYCLE
     Route: 065
     Dates: start: 20231004
  11. VENETOCLAX [Suspect]
     Active Substance: VENETOCLAX
     Dosage: 7.CYCLE
     Route: 065
     Dates: start: 20230809
  12. VENETOCLAX [Suspect]
     Active Substance: VENETOCLAX
     Dosage: 4.CYCLE
     Route: 065
     Dates: start: 20230517
  13. VENETOCLAX [Suspect]
     Active Substance: VENETOCLAX
     Dosage: 8.CYCLE
     Route: 065
     Dates: start: 20230906
  14. VENETOCLAX [Suspect]
     Active Substance: VENETOCLAX
     Dosage: 10.CYCLE
     Route: 065
     Dates: start: 20231101
  15. VENETOCLAX [Suspect]
     Active Substance: VENETOCLAX
     Route: 065
     Dates: start: 20230215
  16. VENETOCLAX [Suspect]
     Active Substance: VENETOCLAX
     Dosage: 5.CYCLE
     Route: 065
     Dates: start: 20230614
  17. VENETOCLAX [Suspect]
     Active Substance: VENETOCLAX
     Dosage: 3.CYCLE
     Route: 065
     Dates: start: 20230419
  18. VENETOCLAX [Suspect]
     Active Substance: VENETOCLAX
     Dosage: 6.CYCLE
     Route: 065
     Dates: start: 20230712

REACTIONS (6)
  - Infection [Unknown]
  - Urosepsis [Unknown]
  - Hypertensive crisis [Unknown]
  - Neutropenia [Recovered/Resolved]
  - Hypertension [Unknown]
  - Tachycardia [Unknown]

NARRATIVE: CASE EVENT DATE: 20230809
